FAERS Safety Report 21799627 (Version 1)
Quarter: 2022Q4

REPORT INFORMATION
  Report Type: Spontaneous
  Country: US (occurrence: None)
  Receive Date: 20221229
  Receipt Date: 20221229
  Transmission Date: 20230113
  Serious: Yes (Death)
  Sender: FDA-Public Use
  Company Number: None

PATIENT
  Sex: Female
  Weight: 81.65 kg

DRUGS (15)
  1. OPDIVO [Suspect]
     Active Substance: NIVOLUMAB
     Indication: Lung carcinoma cell type unspecified stage 0
     Dosage: 360MG Q 3 WEEKS IV
     Route: 042
  2. FAMOTIDINE [Suspect]
     Active Substance: FAMOTIDINE
     Indication: Lung carcinoma cell type unspecified stage 0
     Dosage: 40MG Q 3 WEEKS IV
     Route: 042
  3. CARBOPLATIN [Concomitant]
     Active Substance: CARBOPLATIN
  4. CALCIUM CARBONATE [Concomitant]
     Active Substance: CALCIUM CARBONATE
  5. DEXAMETHASONE [Concomitant]
     Active Substance: DEXAMETHASONE
  6. DICLOFENAC [Concomitant]
     Active Substance: DICLOFENAC
  7. HYDROCHLOROTHIAZIDE [Concomitant]
     Active Substance: HYDROCHLOROTHIAZIDE
  8. MAGNESIUM CITRATE [Concomitant]
     Active Substance: MAGNESIUM CITRATE
  9. ONDANSETRON [Concomitant]
     Active Substance: ONDANSETRON
  10. Pemetraxed [Concomitant]
  11. PHENYTOIN [Concomitant]
     Active Substance: PHENYTOIN
  12. POTASSIUM CHLORIDE [Concomitant]
     Active Substance: POTASSIUM CHLORIDE
  13. PRAVASTATIN [Concomitant]
     Active Substance: PRAVASTATIN
  14. YERVOY [Concomitant]
     Active Substance: IPILIMUMAB
  15. ASPIRIN [Concomitant]
     Active Substance: ASPIRIN

REACTIONS (1)
  - Death [None]
